FAERS Safety Report 8983050 (Version 6)
Quarter: 2014Q1

REPORT INFORMATION
  Report Type: Spontaneous
  Country: US (occurrence: US)
  Receive Date: 20121224
  Receipt Date: 20140304
  Transmission Date: 20141002
  Serious: Yes (Hospitalization, Disabling, Other)
  Sender: FDA-Public Use
  Company Number: US-ASTRAZENECA-2012SE94614

PATIENT
  Age: 59 Year
  Sex: Female
  Weight: 62.6 kg

DRUGS (25)
  1. NEXIUM [Suspect]
     Indication: GASTROOESOPHAGEAL REFLUX DISEASE
     Route: 048
     Dates: start: 2008
  2. NEXIUM [Suspect]
     Indication: GASTROOESOPHAGEAL REFLUX DISEASE
     Route: 048
     Dates: start: 20080905
  3. NEXIUM [Suspect]
     Indication: GASTROOESOPHAGEAL REFLUX DISEASE
     Route: 048
     Dates: start: 20090423
  4. NEXIUM [Suspect]
     Indication: GASTROOESOPHAGEAL REFLUX DISEASE
     Route: 048
     Dates: start: 20100119
  5. NEXIUM [Suspect]
     Indication: GASTROOESOPHAGEAL REFLUX DISEASE
     Route: 048
     Dates: start: 201208
  6. PREVACID OTC [Concomitant]
  7. TUMS [Concomitant]
  8. MILK OF MAGNESIA [Concomitant]
  9. BONIVA [Concomitant]
  10. PERCOCET [Concomitant]
  11. VITAMIN D [Concomitant]
  12. LEXAPRO [Concomitant]
     Route: 048
  13. LEXAPRO [Concomitant]
     Route: 048
     Dates: start: 20100119
  14. B12 [Concomitant]
  15. IRON [Concomitant]
  16. PREVASTATIN [Concomitant]
  17. ZANTAC [Concomitant]
     Dosage: 150 MG
  18. ROLAIDS [Concomitant]
  19. Z PACK [Concomitant]
  20. CALCIUM [Concomitant]
  21. MULTIVITAMINS [Concomitant]
     Dosage: DAILY
     Dates: start: 20100109
  22. TRAMADOL [Concomitant]
     Dates: start: 20100903
  23. TIZANIDINE [Concomitant]
     Dates: start: 20100903
  24. LORTAB [Concomitant]
  25. RISPERDAL [Concomitant]

REACTIONS (13)
  - Wrist fracture [Unknown]
  - Gastric polyps [Unknown]
  - Gastric disorder [Unknown]
  - Depression [Unknown]
  - Schizophrenia [Unknown]
  - Bone disorder [Unknown]
  - Osteoporosis [Unknown]
  - Bone pain [Unknown]
  - Fall [Unknown]
  - Multiple fractures [Unknown]
  - Sinusitis [Unknown]
  - Haemorrhage [Unknown]
  - Osteoarthritis [Unknown]
